FAERS Safety Report 23521842 (Version 13)
Quarter: 2025Q2

REPORT INFORMATION
  Report Type: Spontaneous
  Country: US (occurrence: US)
  Receive Date: 20240214
  Receipt Date: 20250612
  Transmission Date: 20250717
  Serious: Yes (Other)
  Sender: PFIZER
  Company Number: US-PFIZER INC-PV202400018732

PATIENT
  Age: 49 Year
  Sex: Male

DRUGS (5)
  1. SOMAVERT [Suspect]
     Active Substance: PEGVISOMANT
     Indication: Acromegaly
     Dosage: 30MG: INJECT 30 MG UNDER THE SKIN (SUBCUTANEOUS INJECTION) EVERY DAY IN THE ABDOMEN, THIGH, UPPER OU
     Route: 058
     Dates: start: 20171114
  2. SOMAVERT [Suspect]
     Active Substance: PEGVISOMANT
     Indication: Gigantism
     Dosage: INJECT 30 MG UNDER SKIN DAILY IN ABDOMEN, THIGH, UPPER OUTER AREAS BUTTOCKS OR ARM (ROTATE SITES)
     Route: 058
     Dates: start: 20210708
  3. SOMAVERT [Suspect]
     Active Substance: PEGVISOMANT
     Dosage: 30 MG UNDER THE SKIN EVERY DAY IN THE ABDOMEN, THIGH, UPPER OUTER AREAS OF BUTTLOCKS OR OUTERARM
     Route: 058
     Dates: start: 20210708
  4. FARXIGA [Concomitant]
     Active Substance: DAPAGLIFLOZIN PROPANEDIOL
  5. ROSUVASTATIN [Concomitant]
     Active Substance: ROSUVASTATIN

REACTIONS (2)
  - Pneumonia [Unknown]
  - Product dose omission in error [Unknown]
